FAERS Safety Report 16223504 (Version 1)
Quarter: 2019Q2

REPORT INFORMATION
  Report Type: Spontaneous
  Country: US (occurrence: US)
  Receive Date: 20190318
  Receipt Date: 20190318
  Transmission Date: 20190711
  Serious: No
  Sender: FDA-Public Use
  Company Number: None

PATIENT
  Age: 40 Year
  Sex: Male
  Weight: 158.76 kg

DRUGS (2)
  1. TALTZ [Suspect]
     Active Substance: IXEKIZUMAB
     Indication: PSORIASIS
     Dosage: INJECT 80MG (1 PEN) SUBCUTANEOUSLY  EVERY 2 WEEKS  AT WEEK 4-12 AS DIRECTED?
     Route: 058
     Dates: start: 201901
  2. TALTZ [Suspect]
     Active Substance: IXEKIZUMAB
     Indication: RHEUMATOID ARTHRITIS
     Dosage: INJECT 80MG (1 PEN) SUBCUTANEOUSLY  EVERY 2 WEEKS  AT WEEK 4-12 AS DIRECTED?
     Route: 058
     Dates: start: 201901

REACTIONS (1)
  - Overdose [None]
